FAERS Safety Report 4745363-2 (Version None)
Quarter: 2005Q3

REPORT INFORMATION
  Report Type: 
  Country: None (occurrence: None)
  Receive Date: 20050815
  Receipt Date: 20050802
  Transmission Date: 20060218
  Serious: Yes (Hospitalization, Other)
  Sender: FDA-Public Use
  Company Number: 05-08-1353

PATIENT
  Age: 40 Year
  Sex: Male

DRUGS (2)
  1. MIRTAZAPINE [Suspect]
     Dosage: 1.8G
  2. ALCOHOL 2L [Concomitant]

REACTIONS (13)
  - ALCOHOL USE [None]
  - DEHYDRATION [None]
  - DIZZINESS [None]
  - EYE HAEMORRHAGE [None]
  - HEADACHE [None]
  - HEPATITIS [None]
  - INTENTION TREMOR [None]
  - NAUSEA [None]
  - OVERDOSE [None]
  - RHABDOMYOLYSIS [None]
  - SINUS TACHYCARDIA [None]
  - VISION BLURRED [None]
  - WHEEZING [None]
